FAERS Safety Report 12493332 (Version 3)
Quarter: 2016Q3

REPORT INFORMATION
  Report Type: Report from Study
  Country: GB (occurrence: GB)
  Receive Date: 20160623
  Receipt Date: 20160810
  Transmission Date: 20161109
  Serious: Yes (Hospitalization)
  Sender: FDA-Public Use
  Company Number: GB-PFIZER INC-2015327549

PATIENT
  Age: 77 Year
  Sex: Male
  Weight: 78 kg

DRUGS (17)
  1. INOTUZUMAB OZOGAMICIN [Suspect]
     Active Substance: INOTUZUMAB OZOGAMICIN
     Indication: DIFFUSE LARGE B-CELL LYMPHOMA
     Dosage: 0.96 MG/ML SINGLE
     Route: 042
     Dates: start: 20150821, end: 20150918
  2. VINCRISTINE SULFATE. [Suspect]
     Active Substance: VINCRISTINE SULFATE
     Indication: DIFFUSE LARGE B-CELL LYMPHOMA
     Dosage: 2 MG, SINGLE
     Route: 042
     Dates: start: 20150820, end: 20150917
  3. RITUXIMAB [Suspect]
     Active Substance: RITUXIMAB
     Indication: DIFFUSE LARGE B-CELL LYMPHOMA
     Dosage: 720 MG, SINGLE
     Route: 042
     Dates: start: 20150820, end: 20150917
  4. ALLOPURINOL. [Concomitant]
     Active Substance: ALLOPURINOL
     Indication: PROPHYLAXIS
     Dosage: 300 MG, DAILY
     Route: 048
     Dates: start: 20150815, end: 20150927
  5. LEFLUNOMIDE. [Concomitant]
     Active Substance: LEFLUNOMIDE
     Indication: RHEUMATOID ARTHRITIS
     Dosage: 20 MG, 1X/DAY
     Route: 048
     Dates: start: 201107, end: 20150928
  6. FILGRASTINE [Concomitant]
     Indication: PROPHYLAXIS
     Dosage: 300 MG, 1X/DAY
     Route: 058
     Dates: start: 20150823, end: 20150928
  7. DIGOXIN. [Concomitant]
     Active Substance: DIGOXIN
     Dosage: 125 ?G, 1X/DAY
     Route: 048
     Dates: end: 20150928
  8. CYCLOPHOSPHAMIDE. [Suspect]
     Active Substance: CYCLOPHOSPHAMIDE
     Indication: DIFFUSE LARGE B-CELL LYMPHOMA
     Dosage: 1400 MG, SINGLE
     Route: 042
     Dates: start: 20150820, end: 20150917
  9. METOCLOPRAMIDE. [Concomitant]
     Active Substance: METOCLOPRAMIDE
     Indication: PROPHYLAXIS OF NAUSEA AND VOMITING
     Dosage: 10 - 20 MG, AS NEEDED
     Route: 048
     Dates: start: 20150820
  10. ASPIRIN (E.C.) [Concomitant]
     Active Substance: ASPIRIN
     Indication: AORTIC VALVE REPLACEMENT
     Dosage: 75 MG, 1X/DAY
     Route: 048
     Dates: end: 20150928
  11. FUROSEMIDE. [Concomitant]
     Active Substance: FUROSEMIDE
     Indication: FLUID OVERLOAD
     Dosage: 40 MG, 1X/DAY
     Route: 048
     Dates: start: 20150927, end: 20150929
  12. HYDROXYCHLOROQUINE [Concomitant]
     Active Substance: HYDROXYCHLOROQUINE
     Indication: RHEUMATOID ARTHRITIS
     Dosage: 200 MG, 2X/DAY
     Route: 048
     Dates: end: 20150928
  13. PREDNISOLONE. [Suspect]
     Active Substance: PREDNISOLONE
     Indication: DIFFUSE LARGE B-CELL LYMPHOMA
     Dosage: 100 MG, 1X/DAY
     Route: 048
     Dates: start: 20150820, end: 20150921
  14. CHLORPHENAMINE [Concomitant]
     Active Substance: CHLORPHENIRAMINE MALEATE
     Indication: PROPHYLAXIS
     Dosage: 10 MG, SINGLE
     Route: 042
     Dates: start: 20150820, end: 20150917
  15. ONDANSETRON [Concomitant]
     Active Substance: ONDANSETRON
     Indication: PROPHYLAXIS OF NAUSEA AND VOMITING
     Dosage: 8 MG, SINGLE
     Route: 048
     Dates: start: 20150820, end: 20150917
  16. FLUCONAZOLE. [Concomitant]
     Active Substance: FLUCONAZOLE
     Indication: PROPHYLAXIS
     Dosage: 50 MG, DAILY
     Route: 048
     Dates: start: 20150815, end: 20150928
  17. OMEPRAZOLE. [Concomitant]
     Active Substance: OMEPRAZOLE
     Indication: GASTROINTESTINAL HAEMORRHAGE
     Dosage: 40 MG, 1X/DAY
     Route: 048
     Dates: end: 20150928

REACTIONS (1)
  - Infection [Recovered/Resolved]

NARRATIVE: CASE EVENT DATE: 20150928
